FAERS Safety Report 10899069 (Version 1)
Quarter: 2015Q1

REPORT INFORMATION
  Report Type: Spontaneous
  Country: US (occurrence: US)
  Receive Date: 20150309
  Receipt Date: 20150309
  Transmission Date: 20150721
  Serious: No
  Sender: FDA-Public Use
  Company Number: US-ELI_LILLY_AND_COMPANY-US201502005882

PATIENT
  Sex: Male

DRUGS (6)
  1. INSULIN HUMAN [Suspect]
     Active Substance: INSULIN HUMAN
     Indication: TYPE 2 DIABETES MELLITUS
     Dosage: 84 U, QD
     Route: 065
     Dates: start: 201411
  2. HUMALOG [Suspect]
     Active Substance: INSULIN LISPRO
     Indication: TYPE 2 DIABETES MELLITUS
     Dosage: 70 U, TID
     Route: 065
     Dates: start: 201408, end: 20141119
  3. ROPINIROLE. [Concomitant]
     Active Substance: ROPINIROLE
     Indication: RESTLESS LEGS SYNDROME
     Dosage: 4 MG, UNK
  4. PLAVIX [Concomitant]
     Active Substance: CLOPIDOGREL BISULFATE
     Dosage: 75 MG, QD
  5. WARFARIN [Concomitant]
     Active Substance: WARFARIN
     Dosage: 7.5 DF, QD
  6. HUMALOG [Suspect]
     Active Substance: INSULIN LISPRO
     Indication: TYPE 2 DIABETES MELLITUS
     Dosage: UNK
     Route: 065
     Dates: start: 2011

REACTIONS (7)
  - Memory impairment [Unknown]
  - Malaise [Unknown]
  - Blood glucose increased [Unknown]
  - Drug ineffective [Unknown]
  - Injection site bruising [Unknown]
  - Injection site pain [Unknown]
  - Blood glucose decreased [Unknown]

NARRATIVE: CASE EVENT DATE: 2010
